FAERS Safety Report 9879686 (Version 1)
Quarter: 2014Q1

REPORT INFORMATION
  Report Type: Spontaneous
  Country: US (occurrence: US)
  Receive Date: 20140206
  Receipt Date: 20140206
  Transmission Date: 20141002
  Serious: Yes (Hospitalization)
  Sender: FDA-Public Use
  Company Number: US-B.I. PHARMACEUTICALS,INC./RIDGEFIELD-2014-BI-04221BP

PATIENT
  Age: 70 Year
  Sex: Female

DRUGS (4)
  1. SPIRIVA [Suspect]
     Indication: EMPHYSEMA
     Dosage: 18 MCG
     Route: 055
  2. SYMBICORT [Concomitant]
     Indication: EMPHYSEMA
     Dosage: 2 PUF
     Route: 055
  3. HYLANDS LEG CRAMPS FORMULA [Concomitant]
     Indication: MUSCLE SPASMS
     Route: 048
     Dates: start: 2011
  4. AMBIEN [Concomitant]
     Indication: INSOMNIA
     Dosage: 10 MG
     Route: 048
     Dates: start: 2013

REACTIONS (1)
  - Emphysema [Recovered/Resolved]
